FAERS Safety Report 20730524 (Version 1)
Quarter: 2022Q2

REPORT INFORMATION
  Report Type: Spontaneous
  Country: US (occurrence: US)
  Receive Date: 20220420
  Receipt Date: 20220420
  Transmission Date: 20220721
  Serious: No
  Sender: FDA-Public Use
  Company Number: US-JNJFOC-20220431463

PATIENT
  Sex: Male

DRUGS (1)
  1. ZYTIGA [Suspect]
     Active Substance: ABIRATERONE ACETATE
     Indication: Product used for unknown indication
     Dosage: 250MG-TAKE 4 TABLETS BY MOUTH ONCE DAILY AS DIRECTED BUT TAKEN 2 TABLETS IN THE MORNING AND 2 TABLET
     Route: 048

REACTIONS (1)
  - Inappropriate schedule of product administration [Unknown]
